FAERS Safety Report 19106180 (Version 9)
Quarter: 2021Q3

REPORT INFORMATION
  Report Type: Report from Study
  Country: PL (occurrence: PL)
  Receive Date: 20210408
  Receipt Date: 20210920
  Transmission Date: 20211014
  Serious: Yes (Death, Hospitalization)
  Sender: FDA-Public Use
  Company Number: PL-ROCHE-2802984

PATIENT
  Age: 76 Year
  Sex: Female
  Weight: 91 kg

DRUGS (31)
  1. SOLU?MEDROL [Concomitant]
     Active Substance: METHYLPREDNISOLONE SODIUM SUCCINATE
     Indication: COLITIS
     Route: 042
     Dates: start: 20210331
  2. DOBROSON [Concomitant]
     Indication: INSOMNIA
     Dates: start: 20210401
  3. ATEZOLIZUMAB. [Suspect]
     Active Substance: ATEZOLIZUMAB
     Indication: LUNG ADENOCARCINOMA
     Dosage: ATEZOLIZUMAB 1200 MILLIGRAMS (MG) ADMINISTERED BY INTRAVENOUS (IV) INFUSION Q3W ON DAY 1 OF EACH 21?
     Route: 042
     Dates: start: 20200903
  4. IPP (POLAND) [Concomitant]
     Indication: DYSPEPSIA
     Dates: start: 20200917, end: 20201101
  5. SOLU?MEDROL [Concomitant]
     Active Substance: METHYLPREDNISOLONE SODIUM SUCCINATE
     Indication: RENAL FAILURE
  6. GENSULIN [Concomitant]
     Indication: DIABETES MELLITUS
     Dates: start: 20210331
  7. MYCOMAX [Concomitant]
     Active Substance: FLUCONAZOLE
     Indication: GROIN INFECTION
     Route: 042
     Dates: start: 20210419
  8. TORAMIDE [Concomitant]
     Indication: HYPERTENSION
     Dates: start: 2000
  9. BISOCARD [Concomitant]
     Active Substance: BISOPROLOL
     Indication: HYPERTENSION
     Dates: start: 2015
  10. TERTENSIF SR [Concomitant]
     Active Substance: INDAPAMIDE
     Indication: HYPERTENSION
     Dates: start: 2000
  11. TRANXENE [Concomitant]
     Active Substance: CLORAZEPATE DIPOTASSIUM
     Indication: AGITATION
     Dates: start: 2000
  12. POLPRIL [Concomitant]
     Active Substance: RAMIPRIL
     Indication: HYPERTENSION
     Dates: start: 2015
  13. NYSTATYNA [Concomitant]
     Dates: start: 20210401
  14. FOMUKAL [Concomitant]
     Indication: CANDIDA INFECTION
     Dates: start: 20201025, end: 20201029
  15. ZINNAT [Concomitant]
     Active Substance: CEFUROXIME
     Indication: CYSTITIS
     Dates: start: 20210312, end: 20210317
  16. CIPRINOL [Concomitant]
     Active Substance: CIPROFLOXACIN
     Indication: CYSTITIS
     Dates: start: 20210324, end: 20210329
  17. KALIPOZ?PROLONGATUM [Concomitant]
     Active Substance: POTASSIUM CHLORIDE
     Dates: start: 20210324, end: 20210331
  18. RESONIUM [Concomitant]
     Active Substance: SODIUM POLYSTYRENE SULFONATE
     Indication: HYPERKALAEMIA
     Dates: start: 20210331, end: 20210331
  19. NITRENDYPINA [Concomitant]
     Active Substance: NITRENDIPINE
     Indication: HYPERTENSION
     Dates: start: 2000, end: 20210128
  20. NYSTATINUM [Concomitant]
     Active Substance: NYSTATIN
     Indication: ORAL CANDIDIASIS
     Dates: start: 20201009, end: 20201015
  21. GENSULIN [Concomitant]
     Route: 058
     Dates: start: 20210331
  22. EUTHYROX [Concomitant]
     Active Substance: LEVOTHYROXINE SODIUM
     Indication: HYPOTHYROIDISM
     Dates: start: 2013
  23. LERCANIDIPINE [Concomitant]
     Active Substance: LERCANIDIPINE
     Indication: BLOOD PRESSURE INCREASED
     Dates: start: 20210128
  24. RESONIUM [Concomitant]
     Active Substance: SODIUM POLYSTYRENE SULFONATE
     Indication: HYPERKALAEMIA
     Route: 048
     Dates: start: 20210331, end: 20210331
  25. DOBROSON [Concomitant]
     Indication: INSOMNIA
     Dates: start: 20210401
  26. TIRAGOLUMAB. [Suspect]
     Active Substance: TIRAGOLUMAB
     Indication: LUNG ADENOCARCINOMA
     Dosage: TIRAGOLUMAB ADMINISTERED BY IV INFUSION Q3W ON DAY 1 OF EACH 21?DAY CYCLE.?DATE OF MOST RECENT DOSE
     Route: 042
     Dates: start: 20200903
  27. CAPTOPRIL. [Concomitant]
     Active Substance: CAPTOPRIL
     Indication: HYPERTENSION
     Dates: start: 2000
  28. FUROSEMIDE. [Concomitant]
     Active Substance: FUROSEMIDE
     Indication: CHRONIC KIDNEY DISEASE
     Dates: start: 20210324
  29. METFORMAX [Concomitant]
     Active Substance: METFORMIN HYDROCHLORIDE
     Indication: DIABETES MELLITUS
     Dates: start: 20210218, end: 20210331
  30. MAGNESIUM SULFURICUM [Concomitant]
     Indication: MAGNESIUM DEFICIENCY
     Route: 042
     Dates: start: 20210418, end: 20210418
  31. CLEXANE [Concomitant]
     Active Substance: ENOXAPARIN SODIUM
     Route: 058
     Dates: start: 20210422, end: 20210422

REACTIONS (4)
  - Nephritis [Recovering/Resolving]
  - Blood creatinine increased [Not Recovered/Not Resolved]
  - Colitis [Recovered/Resolved]
  - Sepsis [Fatal]

NARRATIVE: CASE EVENT DATE: 20201015
